FAERS Safety Report 11278768 (Version 1)
Quarter: 2015Q3

REPORT INFORMATION
  Report Type: Spontaneous
  Country: None (occurrence: None)
  Receive Date: 20150716
  Receipt Date: 20150716
  Transmission Date: 20151125
  Serious: Yes (Other)
  Sender: FDA-Public Use
  Company Number: None

PATIENT
  Age: 5 Year
  Sex: Male
  Weight: 134.27 kg

DRUGS (2)
  1. LATUDA [Suspect]
     Active Substance: LURASIDONE HYDROCHLORIDE
     Indication: SCHIZOPHRENIA, PARANOID TYPE
     Dates: end: 2015
  2. DEPAKOTE [Suspect]
     Active Substance: DIVALPROEX SODIUM
     Indication: BIPOLAR DISORDER
     Dates: end: 2015

REACTIONS (5)
  - Apparent death [None]
  - Hypertension [None]
  - White blood cell count decreased [None]
  - Dyslipidaemia [None]
  - Overweight [None]

NARRATIVE: CASE EVENT DATE: 198309
